APPROVED DRUG PRODUCT: ONDANSETRON HYDROCHLORIDE AND DEXTROSE IN PLASTIC CONTAINER
Active Ingredient: ONDANSETRON HYDROCHLORIDE
Strength: EQ 0.64MG BASE/ML
Dosage Form/Route: INJECTABLE;INJECTION
Application: A076978 | Product #001
Applicant: HOSPIRA INC
Approved: Feb 26, 2007 | RLD: No | RS: No | Type: DISCN